FAERS Safety Report 21386848 (Version 3)
Quarter: 2022Q4

REPORT INFORMATION
  Report Type: Report from Study
  Country: DE (occurrence: DE)
  Receive Date: 20220928
  Receipt Date: 20221121
  Transmission Date: 20230112
  Serious: Yes (Other)
  Sender: FDA-Public Use
  Company Number: DE-NOVARTISPH-NVSC2022DE199753

PATIENT
  Sex: Female
  Weight: 60 kg

DRUGS (14)
  1. COSENTYX [Suspect]
     Active Substance: SECUKINUMAB
     Indication: Psoriatic arthropathy
     Dosage: 300 MG, ONCE/SINGLE
     Route: 065
     Dates: start: 20220704, end: 20220704
  2. COSENTYX [Suspect]
     Active Substance: SECUKINUMAB
     Dosage: UNK
     Route: 065
  3. COSENTYX [Suspect]
     Active Substance: SECUKINUMAB
     Dosage: 300 MG, ONCE/SINGLE
     Route: 065
     Dates: start: 20220711, end: 20220711
  4. COSENTYX [Suspect]
     Active Substance: SECUKINUMAB
     Dosage: 300 MG, ONCE/SINGLE
     Route: 065
     Dates: start: 20220725, end: 20220725
  5. COSENTYX [Suspect]
     Active Substance: SECUKINUMAB
     Dosage: 300 MG, ONCE/SINGLE
     Route: 065
     Dates: start: 20220801, end: 20220801
  6. COSENTYX [Suspect]
     Active Substance: SECUKINUMAB
     Dosage: 300 MG, ONCE/SINGLE
     Route: 065
     Dates: start: 20220829, end: 20220829
  7. COSENTYX [Suspect]
     Active Substance: SECUKINUMAB
     Dosage: 300 MG, ONCE/SINGLE
     Route: 065
     Dates: start: 20220926, end: 20220926
  8. COSENTYX [Suspect]
     Active Substance: SECUKINUMAB
     Dosage: 300 MG, ONCE/SINGLE
     Route: 065
     Dates: start: 20221024, end: 20221024
  9. PREDNISOLONE [Concomitant]
     Active Substance: PREDNISOLONE
     Indication: Psoriatic arthropathy
     Dosage: 5 MG, QD (1X DAILY)
     Route: 048
     Dates: start: 20220704
  10. PREDNISOLONE [Concomitant]
     Active Substance: PREDNISOLONE
     Indication: Inflammation
  11. IBUPROFEN [Concomitant]
     Active Substance: IBUPROFEN
     Indication: Psoriatic arthropathy
     Dosage: 600 MG, BID (1-0-1) (ONCE IN THE MORNING AND ONCE IN THE EVENING)
     Route: 048
     Dates: start: 20220704
  12. SALICYLVASELIN [Concomitant]
     Indication: Skin disorder
     Dosage: UNK (IN THE EVENINGS)
     Route: 061
     Dates: start: 20221010
  13. CLOBETASOL [Concomitant]
     Active Substance: CLOBETASOL
     Indication: Body fat disorder
     Dosage: UNK (1-2 X DAILY)
     Route: 061
     Dates: start: 20221010
  14. CLOBETASOL [Concomitant]
     Active Substance: CLOBETASOL
     Indication: Skin disorder

REACTIONS (8)
  - Immunosuppression [Recovered/Resolved]
  - COVID-19 [Recovered/Resolved]
  - Pyrexia [Unknown]
  - Cough [Unknown]
  - Oropharyngeal pain [Not Recovered/Not Resolved]
  - Fatigue [Unknown]
  - Rhinitis [Unknown]
  - Dysphagia [Recovered/Resolved]

NARRATIVE: CASE EVENT DATE: 20220715
